FAERS Safety Report 18717691 (Version 1)
Quarter: 2021Q1

REPORT INFORMATION
  Report Type: Spontaneous
  Country: JP (occurrence: JP)
  Receive Date: 20210108
  Receipt Date: 20210108
  Transmission Date: 20210419
  Serious: Yes (Other)
  Sender: FDA-Public Use
  Company Number: JP-COLLEGIUM PHARMACEUTICAL, INC.-2018CGM01384

PATIENT
  Age: 9 Decade
  Sex: Female

DRUGS (1)
  1. NUCYNTA ER [Suspect]
     Active Substance: TAPENTADOL HYDROCHLORIDE
     Indication: CANCER PAIN
     Dosage: 400 MG, 1X/DAY
     Route: 048

REACTIONS (2)
  - Malignant neoplasm progression [Unknown]
  - Dysphagia [Unknown]
